FAERS Safety Report 7954532-X (Version None)
Quarter: 2011Q4

REPORT INFORMATION
  Report Type: 
  Country: None (occurrence: None)
  Receive Date: 20111202
  Receipt Date: 20111128
  Transmission Date: 20120403
  Serious: Yes (Hospitalization, Other)
  Sender: FDA-Public Use
  Company Number: PHEH2011US08455

PATIENT
  Sex: Female

DRUGS (10)
  1. SOLU-MEDROL [Concomitant]
     Indication: MULTIPLE SCLEROSIS
     Dosage: UNK UKN, MONTHLY
     Route: 042
  2. ATENOLOL [Concomitant]
     Indication: HYPERTENSION
     Dosage: 50 MG, BID
     Route: 048
  3. GILENYA [Suspect]
     Dosage: 0.5 MG, QD
  4. GILENYA [Suspect]
     Indication: MULTIPLE SCLEROSIS
     Dosage: 0.5 MG, QD
     Route: 048
     Dates: start: 20111019
  5. BACLOFEN [Concomitant]
     Dosage: 20 MG, QID
  6. ACTONEL [Concomitant]
     Indication: MULTIPLE SCLEROSIS
     Dosage: UNK UKN, UNK
     Route: 048
  7. FAMPRIDINE [Concomitant]
     Indication: MULTIPLE SCLEROSIS
     Dosage: 10 MG, BID
     Route: 048
     Dates: start: 20100101, end: 20111031
  8. AMPYRA [Concomitant]
     Dosage: 20 MG, BID
  9. DETROL [Concomitant]
     Dosage: 4 MG, BID
  10. BACLOFEN [Concomitant]
     Indication: MULTIPLE SCLEROSIS
     Dosage: 10 MG, TID
     Route: 048

REACTIONS (7)
  - MEMORY IMPAIRMENT [None]
  - BLOOD PRESSURE INCREASED [None]
  - GRAND MAL CONVULSION [None]
  - MUSCLE RIGIDITY [None]
  - CONFUSIONAL STATE [None]
  - CONVULSION [None]
  - LOSS OF CONSCIOUSNESS [None]
